FAERS Safety Report 9973952 (Version 1)
Quarter: 2014Q1

REPORT INFORMATION
  Report Type: Report from Study
  Country: US (occurrence: US)
  Receive Date: 20140306
  Receipt Date: 20140306
  Transmission Date: 20141002
  Serious: No
  Sender: FDA-Public Use
  Company Number: US-ABBVIE-13P-163-1157876-00

PATIENT
  Age: 62 Year
  Sex: Female

DRUGS (10)
  1. HUMIRA [Suspect]
     Indication: RHEUMATOID ARTHRITIS
     Dates: start: 20131011
  2. METHOTREXATE [Concomitant]
     Indication: PRODUCT USED FOR UNKNOWN INDICATION
     Dosage: 0.5ML WEEKLY
  3. SULFAZINE EC [Concomitant]
     Indication: PRODUCT USED FOR UNKNOWN INDICATION
     Dosage: 2 TABLETS DAILY
  4. FOLIC ACID [Concomitant]
     Indication: RHEUMATOID ARTHRITIS
  5. BISOPRL/HCTZ [Concomitant]
     Indication: HYPERTENSION
     Dosage: 5/6.25MG DAILY
  6. VENLAFAXINE [Concomitant]
     Indication: DEPRESSION
     Dosage: WEANED TO 1 PILL EVERY THREE DAYS
  7. VENLAFAXINE [Concomitant]
     Indication: ANXIETY
  8. OMPERAZOLE [Concomitant]
     Indication: DYSPEPSIA
     Dosage: 1 DAILY
  9. ZYRTEC [Concomitant]
     Indication: CHRONIC SINUSITIS
     Dosage: 1 DAILY
  10. MULTIVITAMIN [Concomitant]
     Indication: PRODUCT USED FOR UNKNOWN INDICATION

REACTIONS (2)
  - Injection site pain [Recovered/Resolved]
  - Injection site haemorrhage [Recovered/Resolved]
